FAERS Safety Report 10372470 (Version 2)
Quarter: 2014Q3

REPORT INFORMATION
  Report Type: Report from Study
  Country: US (occurrence: US)
  Receive Date: 20140808
  Receipt Date: 20140827
  Transmission Date: 20150326
  Serious: Yes (Hospitalization)
  Sender: FDA-Public Use
  Company Number: US-ACTELION-A-US2014-103101

PATIENT
  Age: 59 Year
  Sex: Female

DRUGS (15)
  1. FLEXERIL [Concomitant]
     Active Substance: CYCLOBENZAPRINE HYDROCHLORIDE
  2. FOSAMAX [Concomitant]
     Active Substance: ALENDRONATE SODIUM
  3. MACITENTAN [Suspect]
     Active Substance: MACITENTAN
     Indication: PULMONARY ARTERIAL HYPERTENSION
     Dosage: 10 MG, UNK
     Route: 048
     Dates: start: 20140312
  4. TYVASO [Concomitant]
     Active Substance: TREPROSTINIL
  5. ADCIRCA [Concomitant]
     Active Substance: TADALAFIL
  6. VICODIN [Concomitant]
     Active Substance: ACETAMINOPHEN\HYDROCODONE BITARTRATE
  7. ULTRAM [Concomitant]
     Active Substance: TRAMADOL HYDROCHLORIDE
  8. TENORMIN [Concomitant]
     Active Substance: ATENOLOL
  9. SYMBICORT [Concomitant]
     Active Substance: BUDESONIDE\FORMOTEROL FUMARATE DIHYDRATE
  10. PRILOSEC [Concomitant]
     Active Substance: OMEPRAZOLE MAGNESIUM
  11. PAXIL [Concomitant]
     Active Substance: PAROXETINE HYDROCHLORIDE
  12. FLONASE [Concomitant]
     Active Substance: FLUTICASONE PROPIONATE
  13. XARELTO [Concomitant]
     Active Substance: RIVAROXABAN
  14. CALCIUM [Concomitant]
     Active Substance: CALCIUM
  15. ZOCOR [Concomitant]
     Active Substance: SIMVASTATIN

REACTIONS (1)
  - Gallbladder operation [Recovered/Resolved]

NARRATIVE: CASE EVENT DATE: 20140723
